FAERS Safety Report 17855341 (Version 1)
Quarter: 2020Q2

REPORT INFORMATION
  Report Type: Spontaneous
  Country: US (occurrence: US)
  Receive Date: 20200603
  Receipt Date: 20200603
  Transmission Date: 20200714
  Serious: Yes (Other)
  Sender: FDA-Public Use
  Company Number: NVSC2020US149372

PATIENT
  Sex: Female

DRUGS (3)
  1. SULFAMETOXAZOL + TRIMETOPRIMA [Interacting]
     Active Substance: SULFAMETHOXAZOLE\TRIMETHOPRIM
     Indication: SURGERY
     Dosage: 1 DF, Q12H
     Route: 048
  2. OXCARBAZEPINE. [Suspect]
     Active Substance: OXCARBAZEPINE
     Indication: SEIZURE
     Dosage: 150 MG
     Route: 065
     Dates: start: 2010
  3. SULFAMETOXAZOL + TRIMETOPRIMA [Interacting]
     Active Substance: SULFAMETHOXAZOLE\TRIMETHOPRIM
     Indication: ANTIBIOTIC THERAPY

REACTIONS (6)
  - Wrong technique in product usage process [Unknown]
  - Aura [Unknown]
  - Drug interaction [Unknown]
  - Drug ineffective [Unknown]
  - Generalised tonic-clonic seizure [Unknown]
  - Musculoskeletal stiffness [Unknown]
